FAERS Safety Report 11566799 (Version 1)
Quarter: 2015Q3

REPORT INFORMATION
  Report Type: Spontaneous
  Country: DE (occurrence: DE)
  Receive Date: 20150929
  Receipt Date: 20150929
  Transmission Date: 20151125
  Serious: Yes (Other)
  Sender: FDA-Public Use
  Company Number: DE-SUN PHARMACEUTICAL INDUSTRIES LTD-13SUNCA08P

PATIENT
  Sex: Male

DRUGS (3)
  1. HERCEPTIN [Suspect]
     Active Substance: TRASTUZUMAB
     Indication: CHEMOTHERAPY
     Dosage: 4 MG/KG, WEEKLY
     Route: 064
  2. TAXOTERE [Suspect]
     Active Substance: DOCETAXEL
     Indication: CHEMOTHERAPY
     Dosage: 75 MG/M2, 1 DOSE/3 WEEKS
     Route: 064
  3. CARBOPLATIN. [Suspect]
     Active Substance: CARBOPLATIN
     Indication: CHEMOTHERAPY
     Dosage: AREA UNDER THE CURVE (AUC) 6 (Q21D), 1 DOSE/3 WEEKS
     Route: 064

REACTIONS (6)
  - Renal failure [Recovered/Resolved]
  - Oligohydramnios [None]
  - Premature baby [Recovered/Resolved]
  - Caesarean section [None]
  - Foetal exposure during pregnancy [Recovered/Resolved]
  - Foetal growth restriction [Unknown]
